FAERS Safety Report 4698077-1 (Version None)
Quarter: 2005Q2

REPORT INFORMATION
  Report Type: 
  Country: None (occurrence: None)
  Receive Date: 20050622
  Receipt Date: 20050622
  Transmission Date: 20051028
  Serious: Yes (Other)
  Sender: FDA-Public Use
  Company Number: None

PATIENT
  Sex: Female
  Weight: 52.9 kg

DRUGS (3)
  1. ETOPOSIDE [Suspect]
     Indication: ACUTE MYELOID LEUKAEMIA
     Dosage: 10 MG/KG/DAY CIV ON DAYS 1-4 (TOTAL DOSE IS 40 MG/KG)
     Route: 042
     Dates: start: 20050409
  2. CYTARABINE [Suspect]
     Dosage: 2 GM/M2 IV OVER 2 HOURS Q12H ON DAYS 1-4 (TOTAL OF 8 DOSES)
     Route: 042
  3. G-CSF [Suspect]
     Dosage: 10 MCG/KG/DAY SC BEGINNING ON DAY 14 UNTIL PBSC COLLECTION IS COMPLETED OF WBC }50,000/MCL.
     Route: 058

REACTIONS (13)
  - BLOOD CULTURE POSITIVE [None]
  - CULTURE POSITIVE [None]
  - CULTURE URINE POSITIVE [None]
  - DEHYDRATION [None]
  - DIARRHOEA [None]
  - EJECTION FRACTION DECREASED [None]
  - HYPOTENSION [None]
  - NAUSEA [None]
  - NEUTROPENIA [None]
  - STAPHYLOCOCCAL INFECTION [None]
  - URINE OUTPUT DECREASED [None]
  - VOMITING [None]
  - VULVAL DISORDER [None]
